FAERS Safety Report 6633991-9 (Version None)
Quarter: 2010Q1

REPORT INFORMATION
  Report Type: 
  Country: None (occurrence: None)
  Receive Date: 20100315
  Receipt Date: 20100302
  Transmission Date: 20100710
  Serious: Yes (Hospitalization, Disabling)
  Sender: FDA-Public Use
  Company Number: PHHY2010JP03283

PATIENT
  Sex: Female
  Weight: 43 kg

DRUGS (7)
  1. ZOMETA [Suspect]
     Indication: METASTASES TO BONE
     Dosage: 4 MG, QMO
     Route: 041
     Dates: start: 20060524, end: 20080310
  2. ZOMETA [Suspect]
     Dosage: 4 MG, QMO
     Route: 041
     Dates: start: 20091101
  3. AREDIA [Suspect]
     Indication: METASTASES TO BONE
     Dosage: 90 MG, QMO
     Route: 041
     Dates: start: 20050615, end: 20060524
  4. HERCEPTIN [Concomitant]
     Route: 042
  5. TAXOTERE [Concomitant]
  6. NAVELBINE [Concomitant]
     Route: 042
  7. FURTULON [Concomitant]
     Route: 048

REACTIONS (7)
  - BONE DISORDER [None]
  - JAW OPERATION [None]
  - MASTICATION DISORDER [None]
  - OSTEONECROSIS [None]
  - SEQUESTRECTOMY [None]
  - TOOTH EXTRACTION [None]
  - TOOTH LOSS [None]
